FAERS Safety Report 24049377 (Version 1)
Quarter: 2024Q3

REPORT INFORMATION
  Report Type: Spontaneous
  Country: GB (occurrence: GB)
  Receive Date: 20240704
  Receipt Date: 20240704
  Transmission Date: 20241017
  Serious: No
  Sender: ALKEM
  Company Number: None

PATIENT
  Age: 51 Year
  Sex: Female
  Weight: 67 kg

DRUGS (10)
  1. IBUPROFEN [Suspect]
     Active Substance: IBUPROFEN
     Indication: Ill-defined disorder
     Dosage: UNK
     Route: 065
     Dates: start: 20240304
  2. LANOLIN\LIGHT MINERAL OIL\PARAFFIN [Concomitant]
     Active Substance: LANOLIN\LIGHT MINERAL OIL\PARAFFIN
     Indication: Product used for unknown indication
     Dosage: UNK (APPLY FREQUENTLY SEVERAL TIMES THROUGOUT THE DAY)
     Route: 065
     Dates: start: 20231213, end: 20240110
  3. ESTRADIOL [Concomitant]
     Active Substance: ESTRADIOL
     Indication: Product used for unknown indication
     Dosage: UNK (APPLY ONE EVOREL 50 PATCH TWICE WEEKLY FOR 2 WE)
     Route: 065
     Dates: start: 20240219
  4. FEXOFENADINE [Concomitant]
     Active Substance: FEXOFENADINE HYDROCHLORIDE
     Indication: Product used for unknown indication
     Dosage: UNK, QD (ONE DAILY)
     Route: 065
     Dates: start: 20240202, end: 20240301
  5. HYDROCORTISONE [Concomitant]
     Active Substance: HYDROCORTISONE\HYDROCORTISONE ACETATE
     Indication: Product used for unknown indication
     Dosage: UNK, BID (APPLY TWICE DAILY)
     Route: 065
     Dates: start: 20231213, end: 20231214
  6. BUTYLSCOPOLAMINE BROMIDE [Concomitant]
     Active Substance: BUTYLSCOPOLAMINE BROMIDE
     Indication: Product used for unknown indication
     Dosage: UNK, TID (2 THREE TIMES DAILY WHEN REQUIRED)
     Route: 065
     Dates: start: 20230629
  7. LANSOPRAZOLE [Concomitant]
     Active Substance: LANSOPRAZOLE
     Indication: Product used for unknown indication
     Dosage: UNK, QD (TAKE ONE ONCE DAILY)
     Route: 065
     Dates: start: 20230629
  8. LEVOTHYROXINE [Concomitant]
     Active Substance: LEVOTHYROXINE\LEVOTHYROXINE SODIUM
     Indication: Product used for unknown indication
     Dosage: UNK, QD (TAKE ONE EACH MORNING)
     Route: 065
     Dates: start: 20230629
  9. TRAMADOL HYDROCHLORIDE [Concomitant]
     Active Substance: TRAMADOL HYDROCHLORIDE
     Indication: Pain
     Dosage: UNK, PRN (TAKE ONE TWICE DAILY WHEN REQUIRED) PROLONGED RELEASE
     Route: 065
     Dates: start: 20240304
  10. Zydol [Concomitant]
     Indication: Product used for unknown indication
     Dosage: UNK, BID (TAKE ONE TWICE DAILY)
     Route: 065
     Dates: start: 20240305

REACTIONS (1)
  - Abdominal pain [Recovered/Resolved]
